FAERS Safety Report 9703814 (Version 1)
Quarter: 2013Q4

REPORT INFORMATION
  Report Type: Spontaneous
  Country: BR (occurrence: BR)
  Receive Date: 20131122
  Receipt Date: 20131122
  Transmission Date: 20140711
  Serious: Yes (Death, Life-Threatening, Hospitalization)
  Sender: FDA-Public Use
  Company Number: BR-ROCHE-1306765

PATIENT
  Age: 80 Year
  Sex: Male

DRUGS (9)
  1. XELODA [Suspect]
     Indication: COLORECTAL CANCER
     Route: 065
     Dates: start: 20100211
  2. METFORMIN [Concomitant]
     Route: 065
  3. GALVUS [Concomitant]
  4. LIPTOR [Concomitant]
  5. ZYLORIC [Concomitant]
  6. ATENOLOL [Concomitant]
  7. EFFEXOR [Concomitant]
  8. CAPOTEN (BRAZIL) [Concomitant]
  9. MODURETIC [Concomitant]

REACTIONS (18)
  - Rash [Fatal]
  - Renal failure acute [Fatal]
  - Toxic epidermal necrolysis [Fatal]
  - Respiratory distress [Fatal]
  - Depressed level of consciousness [Fatal]
  - Anuria [Fatal]
  - Haemodynamic instability [Fatal]
  - General physical health deterioration [Fatal]
  - Mucosal inflammation [Not Recovered/Not Resolved]
  - Chest pain [Unknown]
  - Dyspepsia [Unknown]
  - Thrombocytopenia [Unknown]
  - Candida infection [Unknown]
  - Leukopenia [Unknown]
  - Neutropenia [Unknown]
  - Pyrexia [Recovered/Resolved]
  - Frequent bowel movements [Unknown]
  - Diarrhoea [Not Recovered/Not Resolved]
